FAERS Safety Report 4498596-7 (Version None)
Quarter: 2004Q4

REPORT INFORMATION
  Report Type: 
  Country: None (occurrence: None)
  Receive Date: 20041108
  Receipt Date: 20041027
  Transmission Date: 20050328
  Serious: Yes (Hospitalization, Disabling, Other)
  Sender: FDA-Public Use
  Company Number: 2004241854US

PATIENT
  Sex: Female
  Weight: 55.3 kg

DRUGS (12)
  1. BEXTRA [Suspect]
     Indication: PAIN
     Dosage: ORAL
     Route: 048
     Dates: start: 20040901, end: 20041002
  2. DURAGESIC [Suspect]
     Indication: PAIN
     Dates: start: 20041001
  3. NORVASC [Concomitant]
  4. DIGOXIN [Concomitant]
  5. TRIAMTERENE AND HYDROCHLOROTHIAZIDE [Concomitant]
  6. ECOTRIN [Concomitant]
  7. INSULIN [Concomitant]
  8. VICODIN [Concomitant]
  9. AZMACORT [Concomitant]
  10. OXYGEN (OXYGEN) [Concomitant]
  11. LIPITOR [Concomitant]
  12. XOPENEX [Concomitant]

REACTIONS (6)
  - ASTHENIA [None]
  - BALANCE DISORDER [None]
  - CEREBROVASCULAR ACCIDENT [None]
  - HEMIPARESIS [None]
  - HYPOGLYCAEMIA [None]
  - VISION BLURRED [None]
